FAERS Safety Report 8983756 (Version 6)
Quarter: 2014Q4

REPORT INFORMATION
  Report Type: Report from Study
  Country: CA (occurrence: CA)
  Receive Date: 20121224
  Receipt Date: 20141112
  Transmission Date: 20150529
  Serious: Yes (Other)
  Sender: FDA-Public Use
  Company Number: CA-ROCHE-1168005

PATIENT
  Age: 29 Year
  Sex: Female
  Weight: 77.09 kg

DRUGS (13)
  1. BRICANYL [Concomitant]
     Active Substance: TERBUTALINE SULFATE
     Route: 065
  2. PULMICORT TURBUHALER [Concomitant]
     Active Substance: BUDESONIDE
  3. OMALIZUMAB [Suspect]
     Active Substance: OMALIZUMAB
     Route: 058
     Dates: start: 20051008
  4. OMALIZUMAB [Suspect]
     Active Substance: OMALIZUMAB
     Route: 058
     Dates: start: 2005, end: 2008
  5. NASONEX [Concomitant]
     Active Substance: MOMETASONE FUROATE
     Indication: PRODUCT USED FOR UNKNOWN INDICATION
     Route: 065
  6. ALVESCO [Concomitant]
     Active Substance: CICLESONIDE
  7. OMALIZUMAB [Suspect]
     Active Substance: OMALIZUMAB
     Indication: ASTHMA
     Route: 058
     Dates: start: 20050810
  8. QVAR [Concomitant]
     Active Substance: BECLOMETHASONE DIPROPIONATE
     Indication: PRODUCT USED FOR UNKNOWN INDICATION
     Route: 065
  9. SYMBICORT [Concomitant]
     Active Substance: BUDESONIDE\FORMOTEROL FUMARATE DIHYDRATE
     Indication: PRODUCT USED FOR UNKNOWN INDICATION
     Dosage: 2 PUFFS
     Route: 065
  10. VENTOLINE [Concomitant]
     Active Substance: ALBUTEROL
     Indication: PRODUCT USED FOR UNKNOWN INDICATION
  11. SALBUTAMOL [Concomitant]
     Active Substance: ALBUTEROL
  12. ALVESCO [Concomitant]
     Active Substance: CICLESONIDE
  13. SINGULAIR [Concomitant]
     Active Substance: MONTELUKAST SODIUM
     Indication: PRODUCT USED FOR UNKNOWN INDICATION

REACTIONS (30)
  - Sinus congestion [Not Recovered/Not Resolved]
  - Pregnancy [Unknown]
  - Nasopharyngitis [Unknown]
  - Pneumonia [Unknown]
  - Asthma [Unknown]
  - Anaphylactic reaction [Recovered/Resolved]
  - Breech presentation [Unknown]
  - Nausea [Not Recovered/Not Resolved]
  - Sputum discoloured [Unknown]
  - Weight gain poor [Not Recovered/Not Resolved]
  - Dyspnoea [Unknown]
  - Constipation [Not Recovered/Not Resolved]
  - Blood pressure increased [Unknown]
  - Fatigue [Unknown]
  - Injection site rash [Unknown]
  - Viral upper respiratory tract infection [Recovered/Resolved]
  - Lung disorder [Unknown]
  - Umbilical cord compression [Unknown]
  - Middle ear effusion [Not Recovered/Not Resolved]
  - Haemoptysis [Unknown]
  - Haemoptysis [Not Recovered/Not Resolved]
  - Asthma [Not Recovered/Not Resolved]
  - Lower respiratory tract infection [Unknown]
  - Ear infection [Unknown]
  - Injection site erythema [Unknown]
  - Lung infection [Unknown]
  - Insomnia [Unknown]
  - Hypotension [Unknown]
  - Malaise [Unknown]
  - Maternal exposure during pregnancy [Unknown]

NARRATIVE: CASE EVENT DATE: 200604
